FAERS Safety Report 18022341 (Version 2)
Quarter: 2020Q3

REPORT INFORMATION
  Report Type: Spontaneous
  Country: US (occurrence: US)
  Receive Date: 20200715
  Receipt Date: 20200807
  Transmission Date: 20201103
  Serious: No
  Sender: FDA-Public Use
  Company Number: US-AMGEN-USASP2020112455

PATIENT
  Sex: Male

DRUGS (11)
  1. POTASSIUM CHLORIDE. [Concomitant]
     Active Substance: POTASSIUM CHLORIDE
     Dosage: 10 MEGABECQUEREL, QD
  2. OLMESARTAN MEDOXOMIL. [Concomitant]
     Active Substance: OLMESARTAN MEDOXOMIL
     Indication: BLOOD PRESSURE ABNORMAL
     Dosage: 60 MILLIGRAM, QD
  3. XARELTO [Concomitant]
     Active Substance: RIVAROXABAN
     Dosage: 20 MILLIGRAM, QD
  4. HUMIRA [Concomitant]
     Active Substance: ADALIMUMAB
     Dosage: UNK
  5. FUROSEMIDE. [Concomitant]
     Active Substance: FUROSEMIDE
     Dosage: 80 MILLIGRAM, QD
  6. VITAMIN D3 [Concomitant]
     Active Substance: CHOLECALCIFEROL
     Dosage: UNK, QD
  7. BYSTOLIC [Concomitant]
     Active Substance: NEBIVOLOL HYDROCHLORIDE
     Dosage: 20 MILLIGRAM, QD
  8. OTEZLA [Suspect]
     Active Substance: APREMILAST
     Indication: PSORIASIS
     Dosage: 30 MILLIGRAM, BID
     Route: 048
     Dates: start: 201902
  9. DILTIAZEM. [Concomitant]
     Active Substance: DILTIAZEM
     Dosage: 120 MILLIGRAM, BID
  10. LEVOTHYROXINE. [Concomitant]
     Active Substance: LEVOTHYROXINE
     Dosage: 50 MILLIGRAM, BID
  11. NIACIN. [Concomitant]
     Active Substance: NIACIN
     Dosage: 500 MILLIGRAM, QD

REACTIONS (1)
  - Therapeutic product effect incomplete [Unknown]
